FAERS Safety Report 11555091 (Version 3)
Quarter: 2015Q4

REPORT INFORMATION
  Report Type: Spontaneous
  Country: FR (occurrence: FR)
  Receive Date: 20150925
  Receipt Date: 20151116
  Transmission Date: 20160304
  Serious: Yes (Other)
  Sender: FDA-Public Use
  Company Number: FR-REGENERON PHARMACEUTICALS, INC.-2015-12476

PATIENT
  Age: 73 Year
  Sex: Female

DRUGS (2)
  1. EYLEA [Suspect]
     Active Substance: AFLIBERCEPT
     Indication: PRODUCT USED FOR UNKNOWN INDICATION
     Dosage: 0.033 DF, Q1MON
     Route: 047
     Dates: start: 20141201, end: 20150202
  2. LUCENTIS [Concomitant]
     Active Substance: RANIBIZUMAB
     Indication: AGE-RELATED MACULAR DEGENERATION
     Dosage: 1 DF, Q1MON
     Route: 031
     Dates: start: 20090101

REACTIONS (2)
  - Dyspnoea exertional [Recovered/Resolved]
  - Exercise electrocardiogram abnormal [Recovered/Resolved]

NARRATIVE: CASE EVENT DATE: 20150215
